FAERS Safety Report 17139524 (Version 1)
Quarter: 2019Q4

REPORT INFORMATION
  Report Type: Spontaneous
  Country: US (occurrence: US)
  Receive Date: 20191211
  Receipt Date: 20191211
  Transmission Date: 20200122
  Serious: Yes (Death, Hospitalization, Other)
  Sender: FDA-Public Use
  Company Number: US-DRREDDYS-USA/USA/19/0117221

PATIENT
  Age: 16 Year
  Sex: Female

DRUGS (3)
  1. IBUPROFEN. [Suspect]
     Active Substance: IBUPROFEN
     Indication: PRODUCT USED FOR UNKNOWN INDICATION
     Route: 065
  2. APIXABAN [Suspect]
     Active Substance: APIXABAN
     Indication: PRODUCT USED FOR UNKNOWN INDICATION
  3. IRON [Suspect]
     Active Substance: IRON
     Indication: PRODUCT USED FOR UNKNOWN INDICATION

REACTIONS (11)
  - Hypotension [Unknown]
  - Leukocytosis [Unknown]
  - Hepatotoxicity [Unknown]
  - Anion gap [Unknown]
  - Coagulopathy [Unknown]
  - Acute lung injury [Unknown]
  - Coma [Unknown]
  - Metabolic acidosis [Unknown]
  - Toxicity to various agents [Fatal]
  - Thrombocytopenia [Unknown]
  - Depressed level of consciousness [Unknown]
